FAERS Safety Report 6735613-5 (Version None)
Quarter: 2010Q2

REPORT INFORMATION
  Report Type: 
  Country: None (occurrence: None)
  Receive Date: 20100519
  Receipt Date: 20100505
  Transmission Date: 20101027
  Serious: Yes (Hospitalization)
  Sender: FDA-Public Use
  Company Number: 1000013847

PATIENT
  Age: 78 Year
  Sex: Female

DRUGS (6)
  1. ESCITALOPRAM [Suspect]
     Indication: DEPRESSION
     Dosage: 20 MG (20 MG, 1 IN 1 D), ORAL
     Route: 048
     Dates: end: 20100401
  2. OMEPRAZOLE [Suspect]
     Dosage: 20 MG (20 MG, 1 IN 1 D)
     Dates: end: 20100401
  3. NORSET [Concomitant]
  4. SERESTA [Concomitant]
  5. NOCTAMIDE [Concomitant]
  6. THERALENE [Concomitant]

REACTIONS (7)
  - C-REACTIVE PROTEIN INCREASED [None]
  - CLUMSINESS [None]
  - FALL [None]
  - HYPEROSMOLAR STATE [None]
  - HYPONATRAEMIA [None]
  - RIB FRACTURE [None]
  - SPINAL COMPRESSION FRACTURE [None]
